FAERS Safety Report 18628037 (Version 1)
Quarter: 2020Q4

REPORT INFORMATION
  Report Type: Other
  Country: GB (occurrence: GB)
  Receive Date: 20201217
  Receipt Date: 20201217
  Transmission Date: 20210114
  Serious: Yes (Other)
  Sender: FDA-Public Use
  Company Number: GB-STRIDES ARCOLAB LIMITED-2020SP015857

PATIENT
  Age: 74 Year
  Sex: Male

DRUGS (4)
  1. PREDNISOLONE. [Suspect]
     Active Substance: PREDNISOLONE
     Indication: PROSTATE CANCER
     Dosage: 5 MG PER DAY
     Route: 048
     Dates: start: 20200601
  2. CYPROTERONE [Concomitant]
     Active Substance: CYPROTERONE
     Indication: HOT FLUSH
     Dosage: 50 MILLIGRAM
     Route: 048
     Dates: start: 202011
  3. ABIRATERONE ACETATE. [Suspect]
     Active Substance: ABIRATERONE ACETATE
     Indication: PROSTATE CANCER
     Dosage: 1000 MILLIGRAM PER DAY
     Route: 048
     Dates: start: 20200601
  4. LUPRON DEPOT [Concomitant]
     Active Substance: LEUPROLIDE ACETATE
     Indication: HORMONE THERAPY
     Dosage: 11.25 MILLIGRAM, 12 WEEK
     Route: 058
     Dates: start: 202011

REACTIONS (1)
  - Blood bilirubin increased [Not Recovered/Not Resolved]

NARRATIVE: CASE EVENT DATE: 20201201
